FAERS Safety Report 8579893-2 (Version None)
Quarter: 2012Q3

REPORT INFORMATION
  Report Type: 
  Country: None (occurrence: None)
  Receive Date: 20120808
  Receipt Date: 20120730
  Transmission Date: 20120928
  Serious: Yes (Hospitalization, Other)
  Sender: FDA-Public Use
  Company Number: US-ASTRAZENECA-2011SE54825

PATIENT
  Age: 50 Year
  Sex: Female

DRUGS (1)
  1. NEXIUM [Suspect]
     Route: 048

REACTIONS (9)
  - ABDOMINAL DISCOMFORT [None]
  - THROMBOSIS [None]
  - MALAISE [None]
  - COLON CANCER [None]
  - DRUG DOSE OMISSION [None]
  - BLINDNESS UNILATERAL [None]
  - EYE DISORDER [None]
  - EYE HAEMORRHAGE [None]
  - IMPAIRED DRIVING ABILITY [None]
